FAERS Safety Report 16232520 (Version 1)
Quarter: 2019Q2

REPORT INFORMATION
  Report Type: Spontaneous
  Country: CA (occurrence: CA)
  Receive Date: 20190424
  Receipt Date: 20190424
  Transmission Date: 20190711
  Serious: Yes (Other)
  Sender: FDA-Public Use
  Company Number: CA-009507513-1904CAN009581

PATIENT
  Age: 68 Year
  Sex: Male

DRUGS (3)
  1. FLUDROCORTISONE [Concomitant]
     Active Substance: FLUDROCORTISONE
     Dosage: 0.2 MILLIGRAM, QD
     Route: 065
  2. MIDODRINE HYDROCHLORIDE. [Concomitant]
     Active Substance: MIDODRINE HYDROCHLORIDE
     Dosage: 10 MILLIGRAM, Q8H
     Route: 065
  3. SINEMET [Suspect]
     Active Substance: CARBIDOPA\LEVODOPA
     Indication: PARKINSON^S DISEASE
     Dosage: 1 EVERY 1 DAY
     Route: 065

REACTIONS (9)
  - Dizziness [Recovering/Resolving]
  - Delirium [Recovering/Resolving]
  - Constipation [Recovering/Resolving]
  - Suicidal ideation [Recovering/Resolving]
  - Therapeutic response decreased [Recovering/Resolving]
  - Headache [Recovering/Resolving]
  - Hallucination [Recovering/Resolving]
  - Insomnia [Recovering/Resolving]
  - Confusional state [Recovering/Resolving]
